FAERS Safety Report 6419787-1 (Version None)
Quarter: 2009Q4

REPORT INFORMATION
  Report Type: 
  Country: None (occurrence: None)
  Receive Date: 20091013
  Receipt Date: 20090116
  Transmission Date: 20100525
  Serious: Yes (Other)
  Sender: FDA-Public Use
  Company Number: 1000001737

PATIENT
  Age: 34 Year
  Sex: Female

DRUGS (3)
  1. LEXAPRO [Suspect]
     Indication: DEPRESSION
     Dosage: 10 MG (10 MG, 1 IN 1 D), ORAL
     Route: 048
     Dates: start: 20081111, end: 20081117
  2. WELLBUTRIN [Concomitant]
  3. SYNTHROID [Concomitant]

REACTIONS (1)
  - SUICIDAL IDEATION [None]
